FAERS Safety Report 13420802 (Version 2)
Quarter: 2017Q2

REPORT INFORMATION
  Report Type: Spontaneous
  Country: IT (occurrence: IT)
  Receive Date: 20170409
  Receipt Date: 20170413
  Transmission Date: 20170830
  Serious: Yes (Hospitalization, Other)
  Sender: FDA-Public Use
  Company Number: IT-MYLANLABS-2017M1021380

PATIENT

DRUGS (5)
  1. BACLOFENE MYLAN GENERICS [Suspect]
     Active Substance: BACLOFEN
     Indication: PRODUCT USED FOR UNKNOWN INDICATION
     Dosage: 6 MG, QD
     Dates: start: 20170311, end: 20170311
  2. DUROGESIC [Concomitant]
     Active Substance: FENTANYL
     Indication: PAIN
     Dosage: 50 ?G, UNK
  3. CARDIRENE [Concomitant]
     Active Substance: ASPIRIN DL-LYSINE
     Indication: MYOCARDIAL ISCHAEMIA
     Dosage: UNK
  4. FORZAAR [Concomitant]
     Indication: HYPERTENSION
     Dosage: UNK
  5. GENALEN [Concomitant]
     Indication: OSTEOPOROSIS
     Dosage: 70 MG, UNK

REACTIONS (6)
  - Medication error [Unknown]
  - Status epilepticus [Recovered/Resolved]
  - Depressed level of consciousness [Unknown]
  - Malaise [Unknown]
  - Sopor [Recovering/Resolving]
  - Confusional state [Unknown]

NARRATIVE: CASE EVENT DATE: 20170311
